FAERS Safety Report 8507920-7 (Version None)
Quarter: 2012Q3

REPORT INFORMATION
  Report Type: 
  Country: None (occurrence: None)
  Receive Date: 20120713
  Receipt Date: 20120709
  Transmission Date: 20120928
  Serious: Yes (Hospitalization)
  Sender: FDA-Public Use
  Company Number: US-BAYER-2011-075644

PATIENT
  Age: 36 Year
  Sex: Female
  Weight: 79.365 kg

DRUGS (8)
  1. LEVAQUIN [Concomitant]
     Dosage: 750 MG, UNK
     Dates: start: 20080806
  2. CHERATUSSIN AC [Concomitant]
     Dosage: UNK
     Dates: start: 20080808
  3. YASMIN [Suspect]
     Indication: CONTRACEPTION
     Dosage: UNK
     Dates: start: 20010101, end: 20020101
  4. MULTI-VITAMIN [Concomitant]
  5. MUCINEX [Concomitant]
  6. ASCORBIC ACID [Concomitant]
  7. ROBITUSSIN CF [Concomitant]
  8. YAZ [Suspect]
     Indication: CONTRACEPTION
     Dosage: UNK
     Dates: start: 20060101, end: 20080101

REACTIONS (3)
  - PAIN [None]
  - PULMONARY EMBOLISM [None]
  - DEEP VEIN THROMBOSIS [None]
